FAERS Safety Report 13950632 (Version 1)
Quarter: 2017Q3

REPORT INFORMATION
  Report Type: Spontaneous
  Country: US (occurrence: US)
  Receive Date: 20170908
  Receipt Date: 20170908
  Transmission Date: 20171128
  Serious: Yes (Disabling, Other)
  Sender: FDA-Public Use
  Company Number: US-TEVA-804489USA

PATIENT
  Sex: Female

DRUGS (1)
  1. AMIODARONE [Suspect]
     Active Substance: AMIODARONE
     Route: 065

REACTIONS (12)
  - Toxicity to various agents [Unknown]
  - Pulmonary fibrosis [Unknown]
  - Fatigue [Unknown]
  - Chest pain [Unknown]
  - Fatigue [Unknown]
  - Pneumonia [Unknown]
  - Off label use [Unknown]
  - Asthenia [Unknown]
  - Adverse event [Unknown]
  - Dyspnoea [Unknown]
  - Cough [Unknown]
  - Skin irritation [Unknown]

NARRATIVE: CASE EVENT DATE: 201503
